FAERS Safety Report 12021012 (Version 1)
Quarter: 2016Q1

REPORT INFORMATION
  Report Type: Report from Study
  Country: US (occurrence: US)
  Receive Date: 20160206
  Receipt Date: 20160206
  Transmission Date: 20160526
  Serious: No
  Sender: FDA-Public Use
  Company Number: US-ABBVIE-15K-163-1466847-00

PATIENT
  Age: 69 Year
  Sex: Female

DRUGS (4)
  1. HUMIRA [Suspect]
     Active Substance: ADALIMUMAB
     Dosage: ONE 40 MG INJECTION
     Route: 065
     Dates: start: 20150826, end: 20150826
  2. HUMIRA [Suspect]
     Active Substance: ADALIMUMAB
     Indication: PSORIASIS
     Route: 065
     Dates: start: 2008, end: 2008
  3. HUMIRA [Suspect]
     Active Substance: ADALIMUMAB
     Dosage: ONE 40 MG INJECTION
     Route: 065
     Dates: start: 20150909
  4. HUMIRA [Suspect]
     Active Substance: ADALIMUMAB
     Dosage: TWO 40 MG INJECTION
     Route: 065
     Dates: start: 20150819, end: 20150819

REACTIONS (5)
  - Rash pruritic [Not Recovered/Not Resolved]
  - Psoriasis [Recovering/Resolving]
  - Injection site bruising [Not Recovered/Not Resolved]
  - Injection site pain [Not Recovered/Not Resolved]
  - Fatigue [Not Recovered/Not Resolved]

NARRATIVE: CASE EVENT DATE: 2015
